FAERS Safety Report 7074226-5 (Version None)
Quarter: 2010Q4

REPORT INFORMATION
  Report Type: 
  Country: None (occurrence: None)
  Receive Date: 20101029
  Receipt Date: 20101021
  Transmission Date: 20110411
  Serious: Yes (Death)
  Sender: FDA-Public Use
  Company Number: US-JNJCH-2007332487

PATIENT
  Age: 20 Month

DRUGS (1)
  1. DEXTROMETHORPHAN [Suspect]
     Indication: UPPER RESPIRATORY TRACT INFECTION
     Dosage: TEXT:1 ML (3MG/ML)
     Route: 048

REACTIONS (1)
  - OVERDOSE [None]
